FAERS Safety Report 17564705 (Version 1)
Quarter: 2020Q1

REPORT INFORMATION
  Report Type: Spontaneous
  Country: ES (occurrence: ES)
  Receive Date: 20200320
  Receipt Date: 20200320
  Transmission Date: 20200409
  Serious: Yes (Life-Threatening)
  Sender: FDA-Public Use
  Company Number: ES-SUN PHARMACEUTICAL INDUSTRIES LTD-2020RR-240884

PATIENT
  Age: 79 Year
  Sex: Female

DRUGS (3)
  1. LISINOPRIL. [Suspect]
     Active Substance: LISINOPRIL
     Indication: HYPERTENSION
     Dosage: 20 MILLIGRAM, DAILY
     Route: 048
     Dates: start: 20180615, end: 20200213
  2. LORAZEPAM1MG50COMPRIMIDOS [Concomitant]
     Indication: ANTISOCIAL PERSONALITY DISORDER
     Dosage: 1.5 MILLIGRAM, DAILY
     Route: 048
     Dates: start: 20150323
  3. SERC8MGCOMPRIMIDOS,60COMPRIMIDOS [Concomitant]
     Indication: VERTIGO
     Dosage: 8 MILLIGRAM, DAILY
     Route: 048
     Dates: start: 20191211

REACTIONS (1)
  - Angioedema [Recovering/Resolving]

NARRATIVE: CASE EVENT DATE: 20200213
